FAERS Safety Report 6616809-X (Version None)
Quarter: 2010Q1

REPORT INFORMATION
  Report Type: 
  Country: None (occurrence: None)
  Receive Date: 20100301
  Receipt Date: 20100217
  Transmission Date: 20100710
  Serious: Yes (Hospitalization)
  Sender: FDA-Public Use
  Company Number: 513716

PATIENT
  Age: 2 Year
  Sex: Male

DRUGS (6)
  1. AMIODARONE HCL [Suspect]
     Indication: SUPRAVENTRICULAR EXTRASYSTOLES
     Dosage: 2 MG/KG, INTRAVENOUS BOLUS ; 2 MG/KG, INTRAVENOUS BOLUS
     Route: 040
  2. AMIODARONE HCL [Suspect]
     Indication: VENTRICULAR TACHYCARDIA
     Dosage: 2 MG/KG, INTRAVENOUS BOLUS ; 2 MG/KG, INTRAVENOUS BOLUS
     Route: 040
  3. MORPHINE SULFATE [Concomitant]
  4. AMPICILLIN [Concomitant]
  5. EPINEPHRINE [Concomitant]
  6. (ANTIBIOTICS) [Concomitant]

REACTIONS (5)
  - LONG QT SYNDROME [None]
  - PULSE ABSENT [None]
  - TORSADE DE POINTES [None]
  - UNRESPONSIVE TO STIMULI [None]
  - VENTRICULAR EXTRASYSTOLES [None]
